FAERS Safety Report 26096528 (Version 1)
Quarter: 2025Q4

REPORT INFORMATION
  Report Type: Spontaneous
  Country: US (occurrence: US)
  Receive Date: 20251127
  Receipt Date: 20251127
  Transmission Date: 20260118
  Serious: Yes (Other)
  Sender: RANBAXY
  Company Number: US-SUN PHARMACEUTICAL INDUSTRIES INC-2025R1-538501

PATIENT
  Age: 6 Decade
  Sex: Female

DRUGS (3)
  1. ACETAMINOPHEN [Suspect]
     Active Substance: ACETAMINOPHEN
     Indication: Pain
     Dosage: UNK
     Route: 065
  2. DIPHENHYDRAMINE [Suspect]
     Active Substance: DIPHENHYDRAMINE
     Indication: Pain
     Dosage: UNK
     Route: 065
  3. CORTISONE [Suspect]
     Active Substance: CORTISONE
     Indication: Pain
     Dosage: UNK
     Route: 061

REACTIONS (1)
  - Therapy non-responder [Unknown]
